FAERS Safety Report 4514810-3 (Version None)
Quarter: 2004Q4

REPORT INFORMATION
  Report Type: 
  Country: None (occurrence: None)
  Receive Date: 20041122
  Receipt Date: 20041122
  Transmission Date: 20050328
  Serious: Yes (Death)
  Sender: FDA-Public Use
  Company Number: None

PATIENT
  Age: 72 Year
  Sex: Male
  Weight: 83.9154 kg

DRUGS (7)
  1. LEXAPRO [Suspect]
     Indication: ANXIETY
     Dosage: 10 MG DAILY , ORALLY
     Route: 048
     Dates: start: 20040529, end: 20040613
  2. MEPROBAMATE [Concomitant]
  3. PROSCAR [Concomitant]
  4. AMBIEN [Concomitant]
  5. LISINOPRIL/HCTZ20/12.5 [Concomitant]
  6. ... [Concomitant]
  7. AMOXICILLIN [Concomitant]

REACTIONS (2)
  - COMPLETED SUICIDE [None]
  - INJURY ASPHYXIATION [None]
